FAERS Safety Report 5332482-5 (Version None)
Quarter: 2007Q2

REPORT INFORMATION
  Report Type: 
  Country: None (occurrence: None)
  Receive Date: 20070523
  Receipt Date: 20070509
  Transmission Date: 20071010
  Serious: Yes (Hospitalization, Other)
  Sender: FDA-Public Use
  Company Number: FR-ELI_LILLY_AND_COMPANY-FR200604004370

PATIENT
  Age: 60 Year
  Sex: Female
  Weight: 91.5 kg

DRUGS (6)
  1. LEVOTHYROXINE SODIUM [Concomitant]
     Dosage: 100 UG, DAILY (1/D)
     Route: 048
  2. ALPRAZOLAM [Concomitant]
     Dosage: 0.5 MG, 3/D
     Route: 048
  3. FLUOXETINE [Concomitant]
     Dosage: 20 MG, DAILY (1/D)
     Route: 048
  4. ZOLPIDEM [Concomitant]
     Dosage: 10 MG, DAILY (1/D)
     Route: 048
  5. PRAVASTATIN [Concomitant]
     Dosage: 20 MG, DAILY (1/D)
     Route: 048
  6. EVISTA [Suspect]
     Indication: OSTEOPOROSIS
     Dosage: 60 MG, DAILY (1/D)
     Route: 048
     Dates: start: 20040801, end: 20060201

REACTIONS (2)
  - CONVULSION [None]
  - SUPERIOR SAGITTAL SINUS THROMBOSIS [None]
